FAERS Safety Report 17939171 (Version 2)
Quarter: 2020Q3

REPORT INFORMATION
  Report Type: Spontaneous
  Country: DE (occurrence: DE)
  Receive Date: 20200625
  Receipt Date: 20200929
  Transmission Date: 20201103
  Serious: Yes (Hospitalization)
  Sender: FDA-Public Use
  Company Number: DE-TEVA-2020-DE-1790646

PATIENT
  Age: 72 Year
  Sex: Female
  Weight: 74 kg

DRUGS (10)
  1. BORTEZOMIB. [Suspect]
     Active Substance: BORTEZOMIB
     Dosage: 1.3 MG / M , 3RD CYCLE D1 ON DECEMBER 24TH, 2019
     Route: 058
  2. METAMIZOL [Concomitant]
     Active Substance: METAMIZOLE SODIUM
     Dosage: 2000 MILLIGRAM DAILY; 1?1?1?1
  3. PANTOPRAZOL [Concomitant]
     Active Substance: PANTOPRAZOLE SODIUM
     Dosage: 40 MILLIGRAM DAILY; 1?0?0?0
  4. MOVICOL BEUTEL [Concomitant]
     Active Substance: POLYETHYLENE GLYCOL 3350\POTASSIUM CHLORIDE\SODIUM BICARBONATE\SODIUM CHLORIDE
     Dosage: 1 DOSAGE FORMS DAILY; 1?0?0?0, BAG
  5. DEXAMETHASON [Suspect]
     Active Substance: DEXAMETHASONE
     Dosage: 3RD CYCLE D8.9 DEXAMETHASONE (D1: 24.12.2019)
     Route: 065
  6. ZOPICLON [Concomitant]
     Active Substance: ZOPICLONE
     Dosage: 7.5 MILLIGRAM DAILY; 0?0?0?1
  7. OXYCODON [Concomitant]
     Active Substance: OXYCODONE
     Dosage: 5 MG, 1?0?2?0
  8. LEVOTHYROXIN?NATRIUM [Concomitant]
     Active Substance: LEVOTHYROXINE SODIUM
     Dosage: 50 MICROGRAM DAILY;  1?0?0?0
  9. CYCLOPHOSPHAMID [Suspect]
     Active Substance: CYCLOPHOSPHAMIDE
     Dosage: 900 MG / M , NOT ADMINISTERED IN 12/2019 DUE TO REDUCED AZ
     Route: 065
  10. COTRIM FORTE 800MG/160MG [Concomitant]
     Active Substance: SULFAMETHOXAZOLE\TRIMETHOPRIM
     Dosage: 1?0?1?0, MON, WED, FRI

REACTIONS (6)
  - Pain [Unknown]
  - Musculoskeletal pain [Unknown]
  - Back pain [Unknown]
  - Sensory level abnormal [Unknown]
  - Diarrhoea [Unknown]
  - Constipation [Unknown]
